FAERS Safety Report 6136615-2 (Version None)
Quarter: 2009Q1

REPORT INFORMATION
  Report Type: 
  Country: None (occurrence: None)
  Receive Date: 20090330
  Receipt Date: 20090323
  Transmission Date: 20090719
  Serious: Yes (Hospitalization, Congenital Anomaly)
  Sender: FDA-Public Use
  Company Number: A0680225A

PATIENT
  Sex: Male
  Weight: 3.9 kg

DRUGS (5)
  1. PAXIL [Suspect]
     Indication: DEPRESSION
     Dates: start: 19970101, end: 19990401
  2. ZOVIRAX [Concomitant]
     Dates: start: 19991101
  3. CELEXA [Concomitant]
     Dates: start: 19990427, end: 19990527
  4. FAMVIR [Concomitant]
     Dates: start: 19991101
  5. VITAMIN AND MINERAL PRENATAL SUPPLEMENT W/ FOLIC ACID CAP [Concomitant]

REACTIONS (5)
  - CARDIAC FAILURE CONGESTIVE [None]
  - CONGENITAL GASTRIC ANOMALY [None]
  - DRUG EXPOSURE DURING PREGNANCY [None]
  - HYPERTENSION [None]
  - HYPOPLASTIC LEFT HEART SYNDROME [None]
